FAERS Safety Report 8553406-3 (Version None)
Quarter: 2012Q3

REPORT INFORMATION
  Report Type: 
  Country: None (occurrence: None)
  Receive Date: 20120731
  Receipt Date: 20120723
  Transmission Date: 20120928
  Serious: Yes (Hospitalization)
  Sender: FDA-Public Use
  Company Number: GB-ROCHE-1091797

PATIENT

DRUGS (10)
  1. MABTHERA [Suspect]
     Indication: DIFFUSE LARGE B-CELL LYMPHOMA
  2. CYCLOPHOSPHAMIDE [Suspect]
     Indication: DIFFUSE LARGE B-CELL LYMPHOMA
  3. VINCRISTINE [Suspect]
     Indication: B-CELL LYMPHOMA
  4. DOXORUBICIN HCL [Suspect]
     Indication: B-CELL LYMPHOMA
  5. VINCRISTINE [Suspect]
     Indication: DIFFUSE LARGE B-CELL LYMPHOMA
  6. DOXORUBICIN HCL [Suspect]
     Indication: DIFFUSE LARGE B-CELL LYMPHOMA
  7. MABTHERA [Suspect]
     Indication: B-CELL LYMPHOMA
  8. PREDNISOLONE [Suspect]
     Indication: DIFFUSE LARGE B-CELL LYMPHOMA
     Dosage: ON DAY 1-5
  9. PREDNISOLONE [Suspect]
     Indication: B-CELL LYMPHOMA
  10. CYCLOPHOSPHAMIDE [Suspect]
     Indication: B-CELL LYMPHOMA

REACTIONS (3)
  - NEUTROPENIC SEPSIS [None]
  - SEPSIS [None]
  - DYSPRAXIA [None]
